FAERS Safety Report 5556929-4 (Version None)
Quarter: 2007Q4

REPORT INFORMATION
  Report Type: 
  Country: None (occurrence: None)
  Receive Date: 20071211
  Receipt Date: 20071029
  Transmission Date: 20080405
  Serious: Yes (Death)
  Sender: FDA-Public Use
  Company Number: US021836

PATIENT
  Age: 38 Year
  Sex: Male

DRUGS (4)
  1. ACTIQ [Suspect]
     Indication: ANALGESIA
     Dosage: BUCCAL
     Route: 002
     Dates: start: 20051024, end: 20051024
  2. LONALGAL [Concomitant]
  3. LONARID /00342301/ [Concomitant]
  4. FENTANYL [Concomitant]

REACTIONS (1)
  - DEATH [None]
